FAERS Safety Report 10749363 (Version 11)
Quarter: 2016Q4

REPORT INFORMATION
  Report Type: Spontaneous
  Country: FR (occurrence: FR)
  Receive Date: 20150129
  Receipt Date: 20161121
  Transmission Date: 20170206
  Serious: Yes (Hospitalization, Disabling, Other)
  Sender: FDA-Public Use
  Company Number: FR-GILEAD-2015-0134155

PATIENT
  Age: 46 Year
  Sex: Male
  Weight: 72 kg

DRUGS (7)
  1. SOVALDI [Suspect]
     Active Substance: SOFOSBUVIR
     Indication: HEPATITIS C
     Dosage: 400 MG, QD
     Route: 048
     Dates: start: 20140305, end: 201408
  2. PREVISCAN                          /00261401/ [Concomitant]
     Active Substance: PENTOXIFYLLINE
     Indication: PRODUCT USED FOR UNKNOWN INDICATION
     Route: 065
  3. COPEGUS [Suspect]
     Active Substance: RIBAVIRIN
     Indication: HEPATITIS C
     Dosage: 400 MG, UNK
     Route: 048
     Dates: start: 20140305, end: 201408
  4. INTERFERON [Suspect]
     Active Substance: INTERFERON
     Indication: HEPATITIS C
     Dosage: UNK
     Route: 048
     Dates: start: 201312, end: 201402
  5. LOVENOX [Concomitant]
     Active Substance: ENOXAPARIN SODIUM
     Indication: PRODUCT USED FOR UNKNOWN INDICATION
  6. NICOTINELL [Concomitant]
     Active Substance: NICOTINE
     Indication: PRODUCT USED FOR UNKNOWN INDICATION
     Route: 065
  7. COPEGUS [Suspect]
     Active Substance: RIBAVIRIN
     Dosage: 600 MG, QHS
     Route: 048
     Dates: start: 201312, end: 201408

REACTIONS (10)
  - Tachyarrhythmia [Unknown]
  - Drug ineffective [Unknown]
  - Congestive cardiomyopathy [Recovering/Resolving]
  - Cardiac failure [Unknown]
  - Impaired work ability [Recovered/Resolved]
  - Asthenia [Unknown]
  - Atrial fibrillation [Unknown]
  - Dyspnoea [Unknown]
  - Hepatitis C [Unknown]
  - Fatigue [Unknown]

NARRATIVE: CASE EVENT DATE: 201410
